FAERS Safety Report 14931617 (Version 1)
Quarter: 2018Q2

REPORT INFORMATION
  Report Type: Spontaneous
  Country: US (occurrence: US)
  Receive Date: 20180524
  Receipt Date: 20180524
  Transmission Date: 20180711
  Serious: No
  Sender: FDA-Public Use
  Company Number: US-ACCORD-057860

PATIENT
  Age: 74 Year
  Sex: Female

DRUGS (1)
  1. ACCORD QUETIAPINE [Suspect]
     Active Substance: QUETIAPINE
     Indication: PRODUCT USED FOR UNKNOWN INDICATION

REACTIONS (5)
  - Aggression [Unknown]
  - Mental impairment [Unknown]
  - Confusional state [Unknown]
  - Impaired work ability [Unknown]
  - Dizziness [Unknown]

NARRATIVE: CASE EVENT DATE: 20170819
